FAERS Safety Report 7128624-1 (Version None)
Quarter: 2010Q4

REPORT INFORMATION
  Report Type: 
  Country: None (occurrence: None)
  Receive Date: 20101130
  Receipt Date: 20101126
  Transmission Date: 20110411
  Serious: Yes (Hospitalization)
  Sender: FDA-Public Use
  Company Number: FR-ROCHE-696545

PATIENT
  Sex: Male

DRUGS (6)
  1. ROCEPHIN [Suspect]
     Route: 042
     Dates: start: 20091127, end: 20091218
  2. OFLOCET [Suspect]
     Dosage: STRENGTH: 200 MG/ 40 ML; FORM: INJECTABLE SOLUTION FOR INFUSION
     Route: 042
     Dates: start: 20091130, end: 20091226
  3. OFLOCET [Suspect]
     Route: 042
     Dates: start: 20100901
  4. VANCOMYCIN HCL [Concomitant]
     Route: 042
     Dates: start: 20091203, end: 20091222
  5. AMIKIN [Concomitant]
     Route: 042
     Dates: start: 20091203, end: 20091208
  6. GENTAMICIN [Concomitant]
     Dosage: DRUG REPORTED AS GENTAMYCINE
     Dates: start: 20091127, end: 20091130

REACTIONS (5)
  - CHOLESTASIS [None]
  - DIABETES MELLITUS INADEQUATE CONTROL [None]
  - DRUG RASH WITH EOSINOPHILIA AND SYSTEMIC SYMPTOMS [None]
  - RENAL FAILURE ACUTE [None]
  - SKIN TEST POSITIVE [None]
